FAERS Safety Report 18987677 (Version 1)
Quarter: 2021Q1

REPORT INFORMATION
  Report Type: Spontaneous
  Country: US (occurrence: US)
  Receive Date: 20210309
  Receipt Date: 20210309
  Transmission Date: 20210420
  Serious: No
  Sender: FDA-Public Use
  Company Number: US-ASTRAZENECA-2021A071269

PATIENT
  Sex: Female
  Weight: 73.5 kg

DRUGS (2)
  1. BRILINTA [Suspect]
     Active Substance: TICAGRELOR
     Indication: ANEURYSM REPAIR
     Route: 048
     Dates: start: 20210212
  2. PLAVIX [Concomitant]
     Active Substance: CLOPIDOGREL BISULFATE
     Dates: start: 20210207, end: 20210212

REACTIONS (1)
  - Back pain [Not Recovered/Not Resolved]
